FAERS Safety Report 6773553-6 (Version None)
Quarter: 2010Q2

REPORT INFORMATION
  Report Type: 
  Country: None (occurrence: None)
  Receive Date: 20100611
  Receipt Date: 20100526
  Transmission Date: 20101027
  Serious: Yes (Other)
  Sender: FDA-Public Use
  Company Number: ACO_00960_2010

PATIENT
  Age: 63 Year
  Sex: Female
  Weight: 52.6173 kg

DRUGS (8)
  1. AMPYRA [Suspect]
     Indication: RELAPSING-REMITTING MULTIPLE SCLEROSIS
     Dosage: (10 MG BID, EVERY 12 HOURS ORAL)
     Route: 048
     Dates: start: 20100519, end: 20100522
  2. AVONEX [Concomitant]
  3. PROVIGIL [Concomitant]
  4. DETROL LA [Concomitant]
  5. CENTRUM /00554501/ [Concomitant]
  6. VITAMIN D [Concomitant]
  7. FLAXSEED OIL [Concomitant]
  8. CALCIUM CARBONATE [Concomitant]

REACTIONS (8)
  - ARTHROPOD BITE [None]
  - ASTHENIA [None]
  - CONDITION AGGRAVATED [None]
  - DIZZINESS [None]
  - FALL [None]
  - HEAD INJURY [None]
  - SYNCOPE [None]
  - URINARY TRACT INFECTION [None]
